FAERS Safety Report 19385722 (Version 2)
Quarter: 2021Q3

REPORT INFORMATION
  Report Type: Report from Study
  Country: None (occurrence: US)
  Receive Date: 20210608
  Receipt Date: 20210714
  Transmission Date: 20211014
  Serious: No
  Sender: FDA-Public Use
  Company Number: US-ABBVIE-21K-163-3936197-00

PATIENT
  Sex: Female

DRUGS (1)
  1. SKYRIZI [Suspect]
     Active Substance: RISANKIZUMAB-RZAA
     Indication: RHEUMATOID ARTHRITIS
     Dosage: AT WEEK 4 THEN EVERY 12 WEEKS
     Route: 058
     Dates: start: 20210106

REACTIONS (1)
  - Pain [Unknown]

NARRATIVE: CASE EVENT DATE: 2021
